FAERS Safety Report 11577214 (Version 1)
Quarter: 2015Q3

REPORT INFORMATION
  Report Type: Spontaneous
  Country: US (occurrence: US)
  Receive Date: 20150916
  Receipt Date: 20150916
  Transmission Date: 20151125
  Serious: Yes (Hospitalization, Other)
  Sender: FDA-Public Use
  Company Number: US-ELI_LILLY_AND_COMPANY-US201306001772

PATIENT
  Age: 30 Year
  Sex: Male

DRUGS (3)
  1. HUMALOG [Suspect]
     Active Substance: INSULIN LISPRO
     Dosage: 9 U, SINGLE
     Route: 058
     Dates: start: 20130523
  2. HUMALOG [Suspect]
     Active Substance: INSULIN LISPRO
     Dosage: UNK, UNKNOWN
     Route: 058
  3. HUMALOG [Suspect]
     Active Substance: INSULIN LISPRO
     Dosage: 9 U, SINGLE
     Route: 058
     Dates: start: 20130523

REACTIONS (2)
  - Blood glucose decreased [Recovered/Resolved]
  - Incoherent [Unknown]

NARRATIVE: CASE EVENT DATE: 20130523
